FAERS Safety Report 7970126-4 (Version None)
Quarter: 2011Q4

REPORT INFORMATION
  Report Type: 
  Country: None (occurrence: None)
  Receive Date: 20111212
  Receipt Date: 20111130
  Transmission Date: 20120403
  Serious: Yes (Hospitalization)
  Sender: FDA-Public Use
  Company Number: US-US-EMD SERONO, INC.-7099313

PATIENT
  Sex: Female

DRUGS (6)
  1. LISINOPRIL [Concomitant]
  2. REBIF [Suspect]
     Indication: PRODUCT USED FOR UNKNOWN INDICATION
     Route: 058
     Dates: start: 20091001
  3. DICYCLOMINE [Concomitant]
  4. BISOPROLOL FUMARATE AND HYDROCHLOROTHIAZIDE [Concomitant]
  5. AMITRIPTYLINE HCL [Concomitant]
  6. ALPRAZOLAM [Concomitant]

REACTIONS (5)
  - DIARRHOEA [None]
  - NAUSEA [None]
  - ABDOMINAL PAIN UPPER [None]
  - DEHYDRATION [None]
  - VOMITING [None]
